FAERS Safety Report 17847816 (Version 1)
Quarter: 2020Q2

REPORT INFORMATION
  Report Type: Report from Study
  Country: US (occurrence: US)
  Receive Date: 20200601
  Receipt Date: 20200601
  Transmission Date: 20200714
  Serious: Yes (Hospitalization)
  Sender: FDA-Public Use
  Company Number: US-INCYTE CORPORATION-2020IN004875

PATIENT

DRUGS (1)
  1. JAKAFI [Suspect]
     Active Substance: RUXOLITINIB
     Indication: POLYCYTHAEMIA VERA
     Dosage: 20 MILLIGRAM (4 TABS), BID
     Route: 048
     Dates: start: 20100420

REACTIONS (3)
  - Urinary tract infection [Unknown]
  - Product dose omission [Unknown]
  - Dehydration [Unknown]

NARRATIVE: CASE EVENT DATE: 20200526
